FAERS Safety Report 18027611 (Version 1)
Quarter: 2020Q3

REPORT INFORMATION
  Report Type: Spontaneous
  Country: US (occurrence: US)
  Receive Date: 20200716
  Receipt Date: 20200716
  Transmission Date: 20201103
  Serious: Yes (Hospitalization)
  Sender: FDA-Public Use
  Company Number: US-AUROBINDO-AUR-APL-2020-034560

PATIENT
  Age: 18 Year
  Sex: Female

DRUGS (3)
  1. METHYLPREDNISOLONE. [Suspect]
     Active Substance: METHYLPREDNISOLONE
     Indication: METAL POISONING
     Dosage: 500 MILLIGRAM (3 DAYS OF HIGH?DOSE PULSE STEROIDS)
     Route: 042
  2. IMMUNOGLOBULIN (IMMUNOGLOBULIN HUMAN NORMAL) [Suspect]
     Active Substance: HUMAN IMMUNOGLOBULIN G
     Indication: METAL POISONING
     Dosage: 2 GRAM PER KILOGRAM (PERIOD OF 4 DAYS)
     Route: 042
  3. IMMUNOGLOBULIN (IMMUNOGLOBULIN HUMAN NORMAL) [Suspect]
     Active Substance: HUMAN IMMUNOGLOBULIN G
     Dosage: (PERIOD OF 4 DAYS)
     Route: 042

REACTIONS (1)
  - Drug ineffective [Unknown]
